FAERS Safety Report 9708570 (Version 1)
Quarter: 2013Q4

REPORT INFORMATION
  Report Type: Spontaneous
  Country: US (occurrence: US)
  Receive Date: 20131125
  Receipt Date: 20131125
  Transmission Date: 20140711
  Serious: No
  Sender: FDA-Public Use
  Company Number: US-PFIZER INC-2013332776

PATIENT
  Sex: Female

DRUGS (6)
  1. LYRICA [Suspect]
  2. MORPHINE SULFATE [Suspect]
  3. PREDNISONE [Suspect]
  4. LEVOFLOXACIN [Suspect]
  5. SULFAMETHOXAZOLE-TRIMETHOPRIM (SMZ) [Suspect]
  6. PERINDOPRIL ERBUMINE [Suspect]

REACTIONS (1)
  - Drug hypersensitivity [Unknown]
